FAERS Safety Report 5137938-6 (Version None)
Quarter: 2006Q4

REPORT INFORMATION
  Report Type: 
  Country: None (occurrence: None)
  Receive Date: 20061030
  Receipt Date: 20060215
  Transmission Date: 20070319
  Serious: No
  Sender: FDA-Public Use
  Company Number: US-GLAXOSMITHKLINE-A0593840A

PATIENT
  Age: 67 Year
  Sex: Female

DRUGS (7)
  1. ADVAIR HFA [Suspect]
     Indication: CHRONIC OBSTRUCTIVE PULMONARY DISEASE
     Dosage: 1PUFF PER DAY
     Route: 055
     Dates: start: 20060101
  2. LOTRIAL [Concomitant]
  3. DIOVAN [Concomitant]
  4. STEROID [Concomitant]
  5. BENADRYL [Concomitant]
  6. TETRACYCLINE [Concomitant]
  7. ANTIFUNGAL [Concomitant]

REACTIONS (2)
  - HERPES SIMPLEX [None]
  - ORAL CANDIDIASIS [None]
